FAERS Safety Report 13288942 (Version 1)
Quarter: 2017Q1

REPORT INFORMATION
  Report Type: Report from Study
  Country: None (occurrence: US)
  Receive Date: 20170302
  Receipt Date: 20170302
  Transmission Date: 20170428
  Serious: Yes (Hospitalization)
  Sender: FDA-Public Use
  Company Number: US-ABBVIE-17K-163-1840741-00

PATIENT
  Age: 49 Year
  Sex: Female
  Weight: 88.53 kg

DRUGS (6)
  1. LOSARTAN. [Concomitant]
     Active Substance: LOSARTAN
     Indication: HYPERTENSION
  2. OXYCODONE [Concomitant]
     Active Substance: OXYCODONE
     Indication: PAIN
  3. HUMIRA [Suspect]
     Active Substance: ADALIMUMAB
     Indication: COLITIS ULCERATIVE
     Route: 058
     Dates: start: 201601, end: 201612
  4. DOXEPIN [Concomitant]
     Active Substance: DOXEPIN
     Indication: SLEEP DISORDER
  5. CYMBALTA [Concomitant]
     Active Substance: DULOXETINE HYDROCHLORIDE
     Indication: DEPRESSION
  6. HUMIRA [Suspect]
     Active Substance: ADALIMUMAB
     Indication: HIDRADENITIS

REACTIONS (10)
  - Hypophagia [Recovered/Resolved]
  - Fluid intake reduced [Recovered/Resolved]
  - Wound haemorrhage [Recovered/Resolved]
  - Vomiting [Recovered/Resolved]
  - Vomiting [Recovered/Resolved]
  - Cystitis [Unknown]
  - Hidradenitis [Recovered/Resolved]
  - Device issue [Recovered/Resolved]
  - Fluid intake reduced [Recovered/Resolved]
  - Colitis ulcerative [Unknown]

NARRATIVE: CASE EVENT DATE: 20161222
